FAERS Safety Report 15895889 (Version 1)
Quarter: 2019Q1

REPORT INFORMATION
  Report Type: Spontaneous
  Country: US (occurrence: US)
  Receive Date: 20190131
  Receipt Date: 20190131
  Transmission Date: 20190417
  Serious: Yes (Hospitalization)
  Sender: FDA-Public Use
  Company Number: US-HIKMA PHARMACEUTICALS USA INC.-US-H14001-19-00534

PATIENT
  Age: 61 Year
  Sex: Male
  Weight: 108.9 kg

DRUGS (6)
  1. METHOTREXATE. [Suspect]
     Active Substance: METHOTREXATE
     Route: 042
     Dates: start: 20180905, end: 20180905
  2. METHOTREXATE. [Suspect]
     Active Substance: METHOTREXATE
     Route: 042
     Dates: start: 20180902, end: 20180902
  3. METHOTREXATE. [Suspect]
     Active Substance: METHOTREXATE
     Indication: GRAFT VERSUS HOST DISEASE
     Route: 042
     Dates: start: 20180831, end: 20180831
  4. INCB039110 [Suspect]
     Active Substance: ITACITINIB
     Route: 048
     Dates: start: 20181128
  5. TACROLIMUS. [Suspect]
     Active Substance: TACROLIMUS
     Indication: GRAFT VERSUS HOST DISEASE
     Route: 048
     Dates: start: 20180828
  6. INCB039110 [Suspect]
     Active Substance: ITACITINIB
     Indication: GRAFT VERSUS HOST DISEASE
     Route: 048
     Dates: start: 20180827, end: 20181127

REACTIONS (6)
  - Off label use [Unknown]
  - Hyperglycaemia [Not Recovered/Not Resolved]
  - Graft versus host disease in gastrointestinal tract [Unknown]
  - Disease progression [Unknown]
  - Vomiting [Unknown]
  - Diarrhoea [Unknown]
